FAERS Safety Report 19186315 (Version 2)
Quarter: 2021Q2

REPORT INFORMATION
  Report Type: Spontaneous
  Country: US (occurrence: US)
  Receive Date: 20210427
  Receipt Date: 20210527
  Transmission Date: 20210717
  Serious: Yes (Hospitalization, Other)
  Sender: FDA-Public Use
  Company Number: US-BRISTOL-MYERS SQUIBB COMPANY-BMS-2021-035806

PATIENT
  Age: 88 Year
  Sex: Male
  Weight: 76.2 kg

DRUGS (2)
  1. ELIQUIS [Suspect]
     Active Substance: APIXABAN
     Indication: EMBOLISM VENOUS
  2. ELIQUIS [Suspect]
     Active Substance: APIXABAN
     Indication: CARDIAC DISORDER
     Dosage: 2.5 MILLIGRAM, BID
     Route: 048
     Dates: start: 20210222, end: 20210312

REACTIONS (4)
  - Haemorrhage [Unknown]
  - Blood urine present [Unknown]
  - Intentional product use issue [Unknown]
  - Hypoacusis [Unknown]

NARRATIVE: CASE EVENT DATE: 20210223
